FAERS Safety Report 8274097-5 (Version None)
Quarter: 2012Q2

REPORT INFORMATION
  Report Type: 
  Country: None (occurrence: None)
  Receive Date: 20120411
  Receipt Date: 20120323
  Transmission Date: 20120825
  Serious: No
  Sender: FDA-Public Use
  Company Number: US-ROXANE LABORATORIES, INC.-2012-RO-00894RO

PATIENT
  Sex: Female

DRUGS (1)
  1. RISPERIDONE [Suspect]
     Dosage: 0.75 ML
     Route: 048

REACTIONS (3)
  - FEELING ABNORMAL [None]
  - LETHARGY [None]
  - SEDATION [None]
